FAERS Safety Report 7352504-X (Version None)
Quarter: 2011Q1

REPORT INFORMATION
  Report Type: 
  Country: None (occurrence: None)
  Receive Date: 20110315
  Receipt Date: 20110310
  Transmission Date: 20110831
  Serious: Yes (Other)
  Sender: FDA-Public Use
  Company Number: BR-PFIZER INC-2011053905

PATIENT
  Age: 60 Year
  Sex: Female
  Weight: 57 kg

DRUGS (4)
  1. CHAMPIX [Suspect]
     Indication: TOBACCO USER
     Dosage: 0.5 MG, 1X/DAY
     Route: 048
     Dates: start: 20110101, end: 20110101
  2. REPOGEN [Concomitant]
     Indication: MENOPAUSE
     Dosage: UNK
  3. DIPROSPAN [Concomitant]
     Dosage: UNK
  4. VENALOT [Concomitant]
     Indication: ANGIOPATHY
     Dosage: UNK

REACTIONS (10)
  - NAUSEA [None]
  - FLUID RETENTION [None]
  - FRUSTRATION [None]
  - OEDEMA PERIPHERAL [None]
  - ABDOMINAL DISTENSION [None]
  - FLATULENCE [None]
  - DECREASED APPETITE [None]
  - DYSGEUSIA [None]
  - CONSTIPATION [None]
  - PAIN IN EXTREMITY [None]
